FAERS Safety Report 14651862 (Version 2)
Quarter: 2018Q2

REPORT INFORMATION
  Report Type: Spontaneous
  Country: IT (occurrence: IT)
  Receive Date: 20180317
  Receipt Date: 20180406
  Transmission Date: 20180711
  Serious: Yes (Hospitalization)
  Sender: FDA-Public Use
  Company Number: IT-AUROBINDO-AUR-APL-2018-014596

PATIENT
  Age: 41 Year
  Sex: Male
  Weight: 90 kg

DRUGS (5)
  1. OKI [Concomitant]
     Active Substance: KETOPROFEN LYSINE
     Indication: PYREXIA
     Dosage: 80 MILLIGRAM
     Route: 048
     Dates: start: 20171212, end: 20171217
  2. PARACETAMOL [Suspect]
     Active Substance: ACETAMINOPHEN
     Indication: PYREXIA
     Dosage: ()
     Route: 048
     Dates: start: 20171212, end: 20171217
  3. PARACETAMOL [Suspect]
     Active Substance: ACETAMINOPHEN
     Indication: PYREXIA
  4. BUSCOPAN [Concomitant]
     Active Substance: BUTYLSCOPOLAMINE BROMIDE
     Indication: PRODUCT USED FOR UNKNOWN INDICATION
     Dosage: 10 MILLIGRAM
     Route: 048
     Dates: start: 20171212, end: 20171217
  5. ZERINOL [Concomitant]
     Active Substance: ACETAMINOPHEN\CHLORPHENIRAMINE MALEATE
     Indication: PYREXIA
     Dosage: 300 MG + 2 MG
     Route: 048
     Dates: start: 20171212, end: 20171217

REACTIONS (3)
  - Abdominal pain [Recovered/Resolved]
  - Medication error [Recovered/Resolved]
  - Jaundice [Recovered/Resolved]

NARRATIVE: CASE EVENT DATE: 20171218
